FAERS Safety Report 24316326 (Version 1)
Quarter: 2024Q3

REPORT INFORMATION
  Report Type: Spontaneous
  Country: US (occurrence: None)
  Receive Date: 20240912
  Receipt Date: 20240912
  Transmission Date: 20241016
  Serious: No
  Sender: Public
  Company Number: None

PATIENT
  Sex: Female

DRUGS (1)
  1. EVENITY [Suspect]
     Active Substance: ROMOSOZUMAB-AQQG
     Indication: Senile osteoporosis
     Dosage: 210MG ONCE A MONTH SQ
     Route: 058
     Dates: start: 202407

REACTIONS (4)
  - Cerebrovascular accident [None]
  - Speech disorder [None]
  - Eyelid ptosis [None]
  - Dysphagia [None]
